FAERS Safety Report 16880877 (Version 1)
Quarter: 2019Q4

REPORT INFORMATION
  Report Type: Spontaneous
  Country: US (occurrence: US)
  Receive Date: 20191003
  Receipt Date: 20191003
  Transmission Date: 20200122
  Serious: Yes (Disabling)
  Sender: FDA-Public Use
  Company Number: None

PATIENT
  Age: 34 Year
  Sex: Female
  Weight: 76.5 kg

DRUGS (1)
  1. LEXAPRO [Suspect]
     Active Substance: ESCITALOPRAM OXALATE
     Indication: DEPRESSION
     Route: 048

REACTIONS (12)
  - Migraine [None]
  - Pain in jaw [None]
  - Neuralgia [None]
  - Feeling of body temperature change [None]
  - Headache [None]
  - Trigeminal neuralgia [None]
  - Paraesthesia [None]
  - Hypoaesthesia [None]
  - Toothache [None]
  - Temporomandibular joint syndrome [None]
  - Nasopharyngitis [None]
  - Facial spasm [None]

NARRATIVE: CASE EVENT DATE: 20190507
